FAERS Safety Report 6758528-5 (Version None)
Quarter: 2010Q2

REPORT INFORMATION
  Report Type: 
  Country: None (occurrence: None)
  Receive Date: 20100607
  Receipt Date: 20100528
  Transmission Date: 20101027
  Serious: Yes (Hospitalization)
  Sender: FDA-Public Use
  Company Number: B0657748A

PATIENT
  Sex: Male

DRUGS (9)
  1. FORTUM [Suspect]
     Dosage: 2G THREE TIMES PER DAY
     Route: 042
     Dates: start: 20100313, end: 20100329
  2. CIFLOX [Suspect]
     Dosage: 750G TWICE PER DAY
     Route: 048
     Dates: start: 20100313, end: 20100326
  3. AZACTAM [Suspect]
     Dosage: 1G THREE TIMES PER DAY
     Route: 042
     Dates: start: 20100402, end: 20100404
  4. GLICLAZIDE [Concomitant]
     Indication: DRUG USE FOR UNKNOWN INDICATION
     Route: 065
  5. RAMIPRIL [Concomitant]
     Indication: DRUG USE FOR UNKNOWN INDICATION
     Route: 065
  6. SOTALOL [Concomitant]
     Indication: DRUG USE FOR UNKNOWN INDICATION
     Route: 065
  7. PRAVASTATIN [Concomitant]
     Indication: DRUG USE FOR UNKNOWN INDICATION
     Route: 065
  8. TARDYFERON [Concomitant]
     Indication: DRUG USE FOR UNKNOWN INDICATION
     Route: 065
  9. AMIKIN [Concomitant]
     Dosage: 800MG UNKNOWN
     Route: 042
     Dates: start: 20100326

REACTIONS (2)
  - HEPATIC ENZYME INCREASED [None]
  - HEPATOCELLULAR INJURY [None]
